FAERS Safety Report 22527995 (Version 1)
Quarter: 2023Q2

REPORT INFORMATION
  Report Type: Spontaneous
  Country: JP (occurrence: JP)
  Receive Date: 20230606
  Receipt Date: 20230606
  Transmission Date: 20230722
  Serious: Yes (Death, Life-Threatening, Hospitalization, Other)
  Sender: FDA-Public Use
  Company Number: None

PATIENT
  Age: 71 Year
  Sex: Male

DRUGS (2)
  1. PREDNISOLONE [Suspect]
     Active Substance: PREDNISOLONE
     Indication: Asthma-chronic obstructive pulmonary disease overlap syndrome
     Dosage: 5 MILLIGRAM, QD
     Route: 048
  2. AFATINIB [Suspect]
     Active Substance: AFATINIB
     Indication: Lung adenocarcinoma stage IV
     Dosage: 5 MILLIGRAM, QD
     Route: 048

REACTIONS (7)
  - Bronchopulmonary aspergillosis [Fatal]
  - Disseminated aspergillosis [Fatal]
  - Intra-abdominal haemorrhage [Fatal]
  - Aneurysm ruptured [Fatal]
  - Infected vasculitis [Fatal]
  - Splenic vein aneurysm [Fatal]
  - Vasculitis necrotising [Fatal]
